FAERS Safety Report 18745555 (Version 1)
Quarter: 2021Q1

REPORT INFORMATION
  Report Type: Spontaneous
  Country: US (occurrence: US)
  Receive Date: 20210115
  Receipt Date: 20210115
  Transmission Date: 20210419
  Serious: No
  Sender: FDA-Public Use
  Company Number: US-ASTRAZENECA-2021A003323

PATIENT
  Sex: Male

DRUGS (1)
  1. LYNPARZA [Suspect]
     Active Substance: OLAPARIB
     Indication: METASTASES TO PROSTATE
     Dosage: UNKNOWN
     Route: 048

REACTIONS (3)
  - Fatigue [Unknown]
  - Dizziness [Unknown]
  - Visual impairment [Unknown]
